FAERS Safety Report 8964077 (Version 1)
Quarter: 2012Q4

REPORT INFORMATION
  Report Type: 
  Country: US (occurrence: US)
  Receive Date: 20121213
  Receipt Date: 20121213
  Transmission Date: 20130627
  Serious: Yes (Other)
  Sender: FDA-Public Use
  Company Number: US-GLAXOSMITHKLINE-A1005126A

PATIENT
  Age: 58 Year
  Sex: Male

DRUGS (3)
  1. VOTRIENT [Suspect]
     Indication: RENAL CELL CARCINOMA STAGE III
     Dosage: 4TAB Per day
     Route: 048
     Dates: start: 20120913, end: 20121128
  2. XGEVA [Suspect]
     Indication: PRODUCT USED FOR UNKNOWN INDICATION
     Dosage: 1INJ Single dose
     Route: 042
     Dates: start: 20121031, end: 20121031
  3. MORPHINE [Concomitant]

REACTIONS (15)
  - Osteonecrosis [Recovering/Resolving]
  - Bone pain [Unknown]
  - Rash [Unknown]
  - Tinnitus [Unknown]
  - Otorrhoea [Unknown]
  - Dyskinesia [Unknown]
  - Pain in jaw [Unknown]
  - Loose tooth [Unknown]
  - Liver function test abnormal [Unknown]
  - Stomatitis [Unknown]
  - Blood pressure increased [Unknown]
  - Blister [Unknown]
  - Skin burning sensation [Unknown]
  - Tinea cruris [Unknown]
  - Drug interaction [Unknown]
